FAERS Safety Report 14233033 (Version 1)
Quarter: 2017Q4

REPORT INFORMATION
  Report Type: Spontaneous
  Country: US (occurrence: None)
  Receive Date: 20171128
  Receipt Date: 20171128
  Transmission Date: 20180321
  Serious: No
  Sender: FDA-Public Use
  Company Number: None

PATIENT
  Age: 64 Year
  Sex: Female

DRUGS (1)
  1. HARVONI [Suspect]
     Active Substance: LEDIPASVIR\SOFOSBUVIR

REACTIONS (6)
  - Arthralgia [None]
  - Insomnia [None]
  - Myalgia [None]
  - Tinnitus [None]
  - Musculoskeletal pain [None]
  - Gait disturbance [None]

NARRATIVE: CASE EVENT DATE: 20171128
